FAERS Safety Report 9672119 (Version 2)
Quarter: 2013Q4

REPORT INFORMATION
  Report Type: Spontaneous
  Country: RU (occurrence: RU)
  Receive Date: 20131106
  Receipt Date: 20131106
  Transmission Date: 20140711
  Serious: Yes (Other)
  Sender: FDA-Public Use
  Company Number: RU-JNJFOC-20131007345

PATIENT
  Age: 29 Year
  Sex: Male

DRUGS (8)
  1. XEPLION [Suspect]
     Indication: SCHIZOPHRENIA
     Dosage: GLUTEAL MUSCLE
     Route: 030
     Dates: start: 20130517
  2. XEPLION [Suspect]
     Indication: SCHIZOPHRENIA
     Dosage: GLUTEUS MAXIMUS
     Route: 030
     Dates: start: 20130619
  3. XEPLION [Suspect]
     Indication: SCHIZOPHRENIA
     Dosage: GLUTEUS MAXIMUS
     Route: 030
     Dates: start: 20121219
  4. XEPLION [Suspect]
     Indication: SCHIZOPHRENIA
     Dosage: GLUTEAL MUSCLE
     Route: 030
     Dates: start: 20130613
  5. XEPLION [Suspect]
     Indication: SCHIZOPHRENIA
     Dosage: DELTOID MUSCLE
     Route: 030
     Dates: start: 20121112
  6. XEPLION [Suspect]
     Indication: SCHIZOPHRENIA
     Dosage: DELTOID MUSCLE
     Route: 030
     Dates: start: 20121119
  7. XEPLION [Suspect]
     Indication: SCHIZOPHRENIA
     Dosage: GLUTEUS MAXIMUS
     Route: 030
     Dates: start: 201303
  8. SEDALIT [Suspect]
     Indication: PRODUCT USED FOR UNKNOWN INDICATION
     Route: 065
     Dates: start: 20130122

REACTIONS (14)
  - Suicidal ideation [Unknown]
  - Depression [Unknown]
  - Motor dysfunction [Recovered/Resolved]
  - Drug dependence [Unknown]
  - Abnormal behaviour [Unknown]
  - Drug dose omission [Unknown]
  - Dysarthria [Recovered/Resolved]
  - Grimacing [Unknown]
  - Feeling guilty [Unknown]
  - Drug ineffective [Unknown]
  - Speech disorder [Unknown]
  - Discomfort [Recovered/Resolved]
  - Dysphonia [Unknown]
  - Irritability [Unknown]
